FAERS Safety Report 17233406 (Version 1)
Quarter: 2020Q3

REPORT INFORMATION
  Report Type: Spontaneous
  Country: DE (occurrence: DE)
  Receive Date: 20200104
  Receipt Date: 20200104
  Transmission Date: 20201105
  Serious: Yes (Hospitalization)
  Sender: FDA-Public Use
  Company Number: DE-TEVA-2019-DE-1161139

PATIENT
  Age: 82 Year
  Sex: Male

DRUGS (7)
  1. SPIRONOLACTONE. [Suspect]
     Active Substance: SPIRONOLACTONE
     Dosage: .5 DOSAGE FORMS DAILY; 50 MG, 0.5?0?0?0
     Route: 065
  2. MARCUMAR [Suspect]
     Active Substance: PHENPROCOUMON
     Route: 065
  3. TILIDIN 50/4 RETARD?1A PHARMA [Concomitant]
     Dosage: 4|50 MG, 0?0?1?0
  4. CANDECOR 8MG [Concomitant]
     Dosage: 8 MILLIGRAM DAILY; 8 MG, 1?0?0?0
  5. TORASEMID [Suspect]
     Active Substance: TORSEMIDE
     Dosage: 10 MILLIGRAM DAILY; 10 MG, 1?0?0?0
     Route: 065
  6. METOPROLOL. [Concomitant]
     Active Substance: METOPROLOL
     Dosage: 47.5 MILLIGRAM DAILY; 47.5 MG, 1?0?0.5?0
  7. ETORICOXIB. [Suspect]
     Active Substance: ETORICOXIB
     Dosage: 90 MILLIGRAM DAILY; 90 MG, 0?0?1?0
     Route: 065

REACTIONS (3)
  - Oedema peripheral [Unknown]
  - Dyspnoea [Unknown]
  - Product prescribing error [Unknown]
